FAERS Safety Report 25959147 (Version 1)
Quarter: 2025Q4

REPORT INFORMATION
  Report Type: Spontaneous
  Country: US (occurrence: US)
  Receive Date: 20251025
  Receipt Date: 20251025
  Transmission Date: 20260117
  Serious: No
  Sender: ABBVIE
  Company Number: US-ABBVIE-6514088

PATIENT
  Age: 61 Year
  Sex: Female
  Weight: 47.627 kg

DRUGS (3)
  1. CREON [Suspect]
     Active Substance: PANCRELIPASE AMYLASE\PANCRELIPASE LIPASE\PANCRELIPASE PROTEASE
     Indication: Pancreatic failure
     Dosage: FORM STRENGTH: 36000 UNIT, PROLONGED-RELEASE CAPSULE, ONE PER MEAL, UP TO FOUR PER DAY, LAST ADMI...
     Route: 048
     Dates: start: 202509
  2. CREON [Suspect]
     Active Substance: PANCRELIPASE AMYLASE\PANCRELIPASE LIPASE\PANCRELIPASE PROTEASE
     Indication: Pancreatic failure
     Dosage: FORM STRENGTH: 36000 UNIT, PROLONGED-RELEASE CAPSULE, ONE PER MEAL, UP TO FOUR PER DAY, LAST ADMI...
     Route: 048
     Dates: start: 20251018
  3. CREON [Suspect]
     Active Substance: PANCRELIPASE AMYLASE\PANCRELIPASE LIPASE\PANCRELIPASE PROTEASE
     Indication: Pancreatic failure
     Dosage: FORM STRENGTH: 36000 UNIT, PROLONGED-RELEASE CAPSULE, ONE PER MEAL, UP TO FOUR PER DAY, FIRST AND...
     Route: 048

REACTIONS (3)
  - Drug effect less than expected [Not Recovered/Not Resolved]
  - Abdominal pain upper [Not Recovered/Not Resolved]
  - Diarrhoea [Not Recovered/Not Resolved]

NARRATIVE: CASE EVENT DATE: 20251018
